FAERS Safety Report 6253262-2 (Version None)
Quarter: 2009Q3

REPORT INFORMATION
  Report Type: 
  Country: None (occurrence: None)
  Receive Date: 20090701
  Receipt Date: 20090623
  Transmission Date: 20100115
  Serious: Yes (Hospitalization)
  Sender: FDA-Public Use
  Company Number: US-AMGEN-QUU353034

PATIENT
  Sex: Female

DRUGS (2)
  1. ENBREL [Suspect]
     Indication: RHEUMATOID ARTHRITIS
     Route: 058
     Dates: start: 20030318
  2. METHOTREXATE [Concomitant]
     Route: 048

REACTIONS (5)
  - ASTHMA [None]
  - CONTUSION [None]
  - FALL [None]
  - NASOPHARYNGITIS [None]
  - RHEUMATOID ARTHRITIS [None]
